FAERS Safety Report 8947236 (Version 2)
Quarter: 2012Q4

REPORT INFORMATION
  Report Type: 
  Country: US (occurrence: US)
  Receive Date: 20121205
  Receipt Date: 20121213
  Transmission Date: 20130627
  Serious: Yes (Other)
  Sender: FDA-Public Use
  Company Number: US-JNJFOC-20121113539

PATIENT
  Age: 57 Year
  Sex: Female

DRUGS (5)
  1. CETIRIZINE HYDROCHLORIDE [Suspect]
     Route: 065
  2. CETIRIZINE HYDROCHLORIDE [Suspect]
     Indication: URTICARIA CHRONIC
     Route: 065
  3. FEXOFENADINE [Concomitant]
     Indication: URTICARIA CHRONIC
     Route: 065
  4. RANITIDINE [Concomitant]
     Indication: URTICARIA CHRONIC
     Route: 065
  5. CORTICOSTEROID NOS [Concomitant]
     Indication: URTICARIA CHRONIC
     Route: 048

REACTIONS (9)
  - Chromaturia [Recovered/Resolved]
  - Hepatitis acute [Recovered/Resolved]
  - Abdominal pain [Recovered/Resolved]
  - Fatigue [Recovered/Resolved]
  - Headache [Recovered/Resolved]
  - Diarrhoea [Recovered/Resolved]
  - Blood thyroid stimulating hormone increased [None]
  - Anti-thyroid antibody positive [None]
  - Hepatotoxicity [None]
